FAERS Safety Report 10522205 (Version 1)
Quarter: 2014Q4

REPORT INFORMATION
  Report Type: Report from Study
  Country: US (occurrence: US)
  Receive Date: 20141016
  Receipt Date: 20141016
  Transmission Date: 20150528
  Serious: Yes (Hospitalization, Other)
  Sender: FDA-Public Use
  Company Number: US-MYLANLABS-2014M1006764

PATIENT

DRUGS (4)
  1. LISINOPRIL. [Concomitant]
     Active Substance: LISINOPRIL
     Indication: HYPERTENSION
     Dosage: UNK UNK, QD
     Route: 048
     Dates: start: 20020605, end: 20140525
  2. HEPARIN [Concomitant]
     Active Substance: HEPARIN SODIUM
     Indication: PROPHYLAXIS
     Dosage: 5000 IU, ONCE
     Route: 058
     Dates: start: 20140530, end: 20140530
  3. DEXAMETHASONE. [Suspect]
     Active Substance: DEXAMETHASONE
     Indication: CHRONIC KIDNEY DISEASE
     Dosage: 7.5 MG, ONCE
     Route: 042
  4. FUROSEMIDE. [Concomitant]
     Active Substance: FUROSEMIDE
     Indication: OEDEMA
     Dosage: UNK UNK, BID
     Route: 048
     Dates: start: 20090729, end: 20140525

REACTIONS (6)
  - Acute kidney injury [Unknown]
  - Pneumonia [Unknown]
  - Pleural effusion [Unknown]
  - Hypersensitivity vasculitis [Unknown]
  - Tubulointerstitial nephritis [Unknown]
  - Dermatitis allergic [Unknown]

NARRATIVE: CASE EVENT DATE: 20140524
